FAERS Safety Report 4309555-9 (Version None)
Quarter: 2004Q1

REPORT INFORMATION
  Report Type: 
  Country: None (occurrence: None)
  Receive Date: 20040302
  Receipt Date: 20040218
  Transmission Date: 20041129
  Serious: Yes (Hospitalization)
  Sender: FDA-Public Use
  Company Number: US-JNJFOC-20040204656

PATIENT

DRUGS (1)
  1. TOPAMAX [Suspect]
     Dosage: 1 DOSE (S)

REACTIONS (1)
  - MOVEMENT DISORDER [None]
